FAERS Safety Report 5318004-3 (Version None)
Quarter: 2007Q2

REPORT INFORMATION
  Report Type: 
  Country: None (occurrence: None)
  Receive Date: 20070507
  Receipt Date: 20070504
  Transmission Date: 20071010
  Serious: Yes (Other)
  Sender: FDA-Public Use
  Company Number: IT-BRISTOL-MYERS SQUIBB COMPANY-13770144

PATIENT
  Sex: Male

DRUGS (2)
  1. HYDROXYUREA [Suspect]
     Indication: HAEMATOLOGICAL MALIGNANCY
     Dosage: 1G/DAY X 145 DAYS, THEN 500 MG/DAY X 4 MONTHS, THEN 500 MG/DAY X 10 D/MONTH FOR 15 MONTHS.
  2. FOLIC ACID [Suspect]

REACTIONS (2)
  - ALANINE AMINOTRANSFERASE INCREASED [None]
  - SERUM FERRITIN INCREASED [None]
